FAERS Safety Report 10864314 (Version 2)
Quarter: 2015Q2

REPORT INFORMATION
  Report Type: Report from Study
  Country: US (occurrence: US)
  Receive Date: 20150224
  Receipt Date: 20150416
  Transmission Date: 20150821
  Serious: Yes (Death, Hospitalization, Other)
  Sender: FDA-Public Use
  Company Number: US-TEVA-543078USA

PATIENT
  Age: 46 Year
  Sex: Male

DRUGS (2)
  1. DEPAKOTE [Concomitant]
     Active Substance: DIVALPROEX SODIUM
     Dosage: 1000 MILLIGRAM DAILY;
  2. CLOZAPINE. [Suspect]
     Active Substance: CLOZAPINE
     Indication: SCHIZOAFFECTIVE DISORDER
     Dosage: 450 MILLIGRAM DAILY;
     Route: 048

REACTIONS (5)
  - Dyspnoea [Unknown]
  - Blood glucose abnormal [Unknown]
  - Lung neoplasm malignant [Unknown]
  - Respiratory arrest [Fatal]
  - Respiratory distress [Unknown]

NARRATIVE: CASE EVENT DATE: 201502
